FAERS Safety Report 25507369 (Version 1)
Quarter: 2025Q3

REPORT INFORMATION
  Report Type: Spontaneous
  Country: US (occurrence: US)
  Receive Date: 20250703
  Receipt Date: 20250703
  Transmission Date: 20251020
  Serious: No
  Sender: SANOFI AVENTIS
  Company Number: US-SA-2025SA186214

PATIENT
  Sex: Male

DRUGS (10)
  1. DUPIXENT [Suspect]
     Active Substance: DUPILUMAB
     Indication: Nasal polyps
     Dosage: 300 MG, QOW
     Route: 058
     Dates: start: 20220106
  2. ANASTROZOLE [Concomitant]
     Active Substance: ANASTROZOLE
  3. AZELEX [Concomitant]
     Active Substance: AZELAIC ACID
  4. ELIQUIS [Concomitant]
     Active Substance: APIXABAN
  5. FINASTERIDE [Concomitant]
     Active Substance: FINASTERIDE
  6. FLUTICASONE [Concomitant]
     Active Substance: FLUTICASONE
  7. METOPROLOL SUCCINATE [Concomitant]
     Active Substance: METOPROLOL SUCCINATE
  8. METRONIDAZOLE [Concomitant]
     Active Substance: METRONIDAZOLE
  9. MODAFINIL [Concomitant]
     Active Substance: MODAFINIL
  10. BUPRENORPHINE\NALOXONE [Concomitant]
     Active Substance: BUPRENORPHINE\NALOXONE

REACTIONS (1)
  - Drug ineffective [Unknown]
